FAERS Safety Report 19940827 (Version 1)
Quarter: 2021Q4

REPORT INFORMATION
  Report Type: Spontaneous
  Country: US (occurrence: US)
  Receive Date: 20211011
  Receipt Date: 20211011
  Transmission Date: 20220303
  Serious: No
  Sender: FDA-Public Use
  Company Number: US-GLENMARK PHARMACEUTICALS-2021GMK053362

PATIENT

DRUGS (3)
  1. DESONIDE [Suspect]
     Active Substance: DESONIDE
     Indication: Skin lesion
     Dosage: UNK
     Route: 061
  2. DESONIDE [Suspect]
     Active Substance: DESONIDE
     Indication: Arthritis
  3. DESONIDE [Suspect]
     Active Substance: DESONIDE
     Indication: Skin discolouration

REACTIONS (1)
  - Product use in unapproved indication [Unknown]

NARRATIVE: CASE EVENT DATE: 20210402
